FAERS Safety Report 4490599-1 (Version None)
Quarter: 2004Q4

REPORT INFORMATION
  Report Type: 
  Country: None (occurrence: None)
  Receive Date: 20041102
  Receipt Date: 20041022
  Transmission Date: 20050328
  Serious: Yes (Hospitalization)
  Sender: FDA-Public Use
  Company Number: US-MERCK-0410USA03517

PATIENT
  Age: 47 Year
  Sex: Female

DRUGS (7)
  1. VIOXX [Suspect]
     Route: 048
  2. REBIF [Suspect]
     Indication: MULTIPLE SCLEROSIS
     Route: 065
     Dates: start: 20040401, end: 20040601
  3. GLUCOPHAGE [Concomitant]
     Route: 065
  4. LEXAPRO [Concomitant]
     Route: 065
  5. ACTOS [Concomitant]
     Route: 065
  6. DITROPAN [Concomitant]
     Route: 065
  7. DEXEDRINE [Concomitant]
     Route: 065

REACTIONS (3)
  - CARDIAC FAILURE CONGESTIVE [None]
  - CARDIOMYOPATHY [None]
  - VIRAL PERICARDITIS [None]
